FAERS Safety Report 10599185 (Version 3)
Quarter: 2014Q4

REPORT INFORMATION
  Report Type: Report from Study
  Country: US (occurrence: US)
  Receive Date: 20141121
  Receipt Date: 20141219
  Transmission Date: 20150529
  Serious: Yes (Hospitalization, Other)
  Sender: FDA-Public Use
  Company Number: PHEH2014US020667

PATIENT
  Sex: Female
  Weight: 61.23 kg

DRUGS (2)
  1. PULMOZYME [Concomitant]
     Active Substance: DORNASE ALFA
     Indication: PRODUCT USED FOR UNKNOWN INDICATION
     Dosage: UNK
     Route: 065
  2. TOBI PODHALER [Suspect]
     Active Substance: TOBRAMYCIN
     Indication: CYSTIC FIBROSIS
     Dosage: 112 MG, TWICE A DAY (WITH 28 DAY CYCLES)
     Route: 055

REACTIONS (6)
  - Malaise [Unknown]
  - Cystic fibrosis [Unknown]
  - Influenza [Unknown]
  - Forced expiratory volume decreased [Unknown]
  - Condition aggravated [Unknown]
  - Pseudomonas test positive [Unknown]
